FAERS Safety Report 9006514 (Version 1)
Quarter: 2013Q1

REPORT INFORMATION
  Report Type: Spontaneous
  Country: FI (occurrence: FI)
  Receive Date: 20130110
  Receipt Date: 20130110
  Transmission Date: 20140127
  Serious: Yes (Hospitalization, Other)
  Sender: FDA-Public Use
  Company Number: FI-ELI_LILLY_AND_COMPANY-FI201301000699

PATIENT
  Sex: Female

DRUGS (7)
  1. FORSTEO [Suspect]
     Indication: OSTEOPOROSIS
     Dosage: 20 UG, QD
     Route: 058
     Dates: start: 20110907, end: 201212
  2. PRIMPERAN [Concomitant]
     Indication: NAUSEA
     Dosage: UNK, UNKNOWN
     Route: 065
  3. OXIKLORIN [Concomitant]
     Indication: RHEUMATOID ARTHRITIS
     Dosage: UNK, UNKNOWN
     Route: 065
  4. PREDNISOLON [Concomitant]
     Dosage: UNK, UNKNOWN
     Route: 065
  5. NEXIUM [Concomitant]
     Dosage: UNK, UNKNOWN
     Route: 065
  6. OXYCONTIN [Concomitant]
     Indication: PAIN
     Dosage: UNK, UNKNOWN
     Route: 065
  7. CAD [Concomitant]
     Dosage: UNK, UNKNOWN
     Route: 065

REACTIONS (1)
  - Sepsis [Recovered/Resolved]
